FAERS Safety Report 4370909-6 (Version None)
Quarter: 2004Q2

REPORT INFORMATION
  Report Type: 
  Country: None (occurrence: None)
  Receive Date: 20040601
  Receipt Date: 20040525
  Transmission Date: 20050107
  Serious: Yes (Other)
  Sender: FDA-Public Use
  Company Number: 2004IC000158

PATIENT
  Age: 66 Year
  Sex: Female

DRUGS (1)
  1. FLUOROURACIL [Suspect]
     Indication: RECTAL CANCER
     Dosage: 750 MG; INTRAVENOUS
     Route: 042
     Dates: start: 20030520, end: 20030624

REACTIONS (1)
  - LEUKOENCEPHALOPATHY [None]
